FAERS Safety Report 16089791 (Version 1)
Quarter: 2019Q1

REPORT INFORMATION
  Report Type: Spontaneous
  Country: US (occurrence: US)
  Receive Date: 20190215
  Receipt Date: 20190215
  Transmission Date: 20190418
  Serious: Yes (Other)
  Sender: FDA-Public Use
  Company Number: None

PATIENT
  Age: 43 Year
  Sex: Female
  Weight: 80.74 kg

DRUGS (1)
  1. ROCURONIUM 50MG/5ML [Suspect]
     Active Substance: ROCURONIUM BROMIDE
     Indication: SURGERY
     Route: 042
     Dates: start: 20190212

REACTIONS (3)
  - Procedural complication [None]
  - Blood pressure decreased [None]
  - Erythema [None]

NARRATIVE: CASE EVENT DATE: 20190212
